FAERS Safety Report 5700867-0 (Version None)
Quarter: 2008Q2

REPORT INFORMATION
  Report Type: 
  Country: None (occurrence: None)
  Receive Date: 20080410
  Receipt Date: 20080403
  Transmission Date: 20081010
  Serious: Yes (Death, Life-Threatening, Other)
  Sender: FDA-Public Use
  Company Number: A0608247A

PATIENT
  Age: 16 Year
  Sex: Female
  Weight: 47.3 kg

DRUGS (5)
  1. ADVAIR HFA [Suspect]
     Indication: ASTHMA
     Dosage: 1PUFF TWICE PER DAY
     Route: 055
     Dates: start: 20010901
  2. RHINOCORT [Concomitant]
  3. ALBUTEROL [Concomitant]
  4. LORATADINE [Concomitant]
  5. MIDRIN [Concomitant]

REACTIONS (8)
  - ANOXIC ENCEPHALOPATHY [None]
  - ASTHMA [None]
  - CYANOSIS [None]
  - DRUG INEFFECTIVE [None]
  - DYSPNOEA [None]
  - LUNG HYPERINFLATION [None]
  - RESPIRATORY ARREST [None]
  - SYNCOPE [None]
